FAERS Safety Report 4865634-9 (Version None)
Quarter: 2005Q4

REPORT INFORMATION
  Report Type: 
  Country: None (occurrence: None)
  Receive Date: 20051220
  Receipt Date: 20051207
  Transmission Date: 20060501
  Serious: Yes (Other)
  Sender: FDA-Public Use
  Company Number: 2005165479

PATIENT
  Sex: Male
  Weight: 136.0791 kg

DRUGS (6)
  1. VIAGRA [Suspect]
     Indication: ERECTILE DYSFUNCTION
     Dosage: 50 MG (50 MG AS NECESSARY)
  2. LEVITRA [Suspect]
     Indication: ERECTILE DYSFUNCTION
  3. LISINOPRIL [Concomitant]
  4. HYDROCHLOROTHIAZIDE [Concomitant]
  5. DRUG USED IN DIABETES (DRUG USED IN DIABETES) [Concomitant]
  6. NUTRITIONAL SUPPLEMENT (GENERAL NUTRIENTS) [Concomitant]

REACTIONS (4)
  - DRUG INEFFECTIVE [None]
  - HEADACHE [None]
  - HYPOTHALAMO-PITUITARY DISORDERS [None]
  - OBESITY [None]
